FAERS Safety Report 9030347 (Version 1)
Quarter: 2013Q1

REPORT INFORMATION
  Report Type: Spontaneous
  Country: FR (occurrence: FR)
  Receive Date: 20130122
  Receipt Date: 20130122
  Transmission Date: 20140127
  Serious: Yes (Hospitalization)
  Sender: FDA-Public Use
  Company Number: FR-PFIZER INC-2013021215

PATIENT
  Age: 77 Year
  Sex: Male

DRUGS (7)
  1. TAZOCILLINE [Suspect]
     Indication: PROPHYLAXIS
     Dosage: UNK
     Route: 042
     Dates: start: 20120624, end: 20120709
  2. TAZOCILLINE [Suspect]
     Dosage: UNK
     Dates: start: 201207, end: 201207
  3. ERYTHROCINE [Suspect]
     Indication: PROPHYLAXIS
     Dosage: UNK
     Route: 048
     Dates: start: 20120624, end: 20120702
  4. TIENAM [Suspect]
     Indication: PROPHYLAXIS
     Dosage: 2250 MG PER DAY
     Route: 042
     Dates: start: 20120713, end: 20120717
  5. AMIKACIN [Concomitant]
     Indication: PROPHYLAXIS
     Dosage: UNK
  6. VANCOMYCIN [Concomitant]
     Dosage: UNK
  7. AMIKLIN [Concomitant]

REACTIONS (6)
  - Drug reaction with eosinophilia and systemic symptoms [Recovering/Resolving]
  - Erythema [Recovering/Resolving]
  - Hepatocellular injury [Recovering/Resolving]
  - Renal failure acute [Recovering/Resolving]
  - Pyrexia [Recovered/Resolved]
  - Eosinophilia [Recovering/Resolving]
